FAERS Safety Report 7999040-5 (Version None)
Quarter: 2011Q4

REPORT INFORMATION
  Report Type: 
  Country: None (occurrence: None)
  Receive Date: 20111221
  Receipt Date: 20111212
  Transmission Date: 20120403
  Serious: Yes (Other)
  Sender: FDA-Public Use
  Company Number: PHHY2011JP109295

PATIENT
  Age: 26 Year
  Sex: Female

DRUGS (2)
  1. FOLIC ACID [Concomitant]
  2. TEGRETOL [Suspect]
     Indication: EPILEPSY
     Dosage: 200MG DAILY

REACTIONS (1)
  - BLOOD CREATINE PHOSPHOKINASE INCREASED [None]
